FAERS Safety Report 4808289-1 (Version None)
Quarter: 2005Q4

REPORT INFORMATION
  Report Type: 
  Country: None (occurrence: None)
  Receive Date: 20051021
  Receipt Date: 20051010
  Transmission Date: 20060501
  Serious: Yes (Hospitalization)
  Sender: FDA-Public Use
  Company Number: 2005-DE-04215GD

PATIENT
  Age: 77 Year
  Sex: Female

DRUGS (9)
  1. CALCIUM CARBONATE (CALCIUM CARBONATE) [Suspect]
     Dosage: 1000 MG (NR, TWICE DAILY), NR
  2. GATIFLOXACIN [Suspect]
     Indication: NOSOCOMIAL INFECTION
     Dosage: 400 MG (NR), PO
     Route: 048
  3. GATIFLOXACIN [Suspect]
     Indication: PNEUMONIA BACTERIAL
     Dosage: 400 MG (NR), PO
     Route: 048
  4. MULTIVITAMIN PREPARATION (MULTIVITAMINS) [Suspect]
     Dosage: PREPARATION CONTAINING IRON 15 MG, MAGNESIUM 100 MG, ZINC 15 MG (NR, ONCE), PO
     Route: 048
  5. WARFARIN SODIUM [Concomitant]
  6. PRAVASTATIN [Concomitant]
  7. METOPROLOL [Concomitant]
  8. CYANOCOBALAMINE (CYANOCOBALAMIN) [Concomitant]
  9. VITAMIN D [Concomitant]

REACTIONS (8)
  - CREATININE RENAL CLEARANCE DECREASED [None]
  - DELIRIUM [None]
  - DRUG INEFFECTIVE [None]
  - FALL [None]
  - INAPPROPRIATE SCHEDULE OF DRUG ADMINISTRATION [None]
  - NOSOCOMIAL INFECTION [None]
  - PNEUMONIA BACTERIAL [None]
  - WRIST FRACTURE [None]
